FAERS Safety Report 4596333-9 (Version None)
Quarter: 2005Q1

REPORT INFORMATION
  Report Type: 
  Country: None (occurrence: None)
  Receive Date: 20050225
  Receipt Date: 20050214
  Transmission Date: 20050727
  Serious: No
  Sender: FDA-Public Use
  Company Number: 2005AC00293

PATIENT
  Age: 55 Year
  Sex: Male

DRUGS (8)
  1. BUPIVACAINE [Suspect]
     Indication: ANALGESIC EFFECT
     Dosage: 3 ML ONCE LU
  2. BUPIVACAINE [Suspect]
     Indication: ANALGESIC EFFECT
     Dosage: 20 ML ONCE LU
  3. BUPIVACAINE [Suspect]
     Indication: ANALGESIC EFFECT
     Dosage: 10 ML ONCE LU
  4. BUPIVACAINE [Suspect]
     Indication: ANALGESIC EFFECT
     Dosage: 10 ML ONCE LU
  5. BUPIVACAINE [Suspect]
     Indication: ANALGESIC EFFECT
     Dosage: 10 ML ONCE LU
  6. BUPIVACAINE [Suspect]
     Indication: ANALGESIC EFFECT
     Dosage: 10 ML ONCE LU
  7. NEOSTIGMINE [Concomitant]
  8. ATROPINE [Concomitant]

REACTIONS (6)
  - ACQUIRED DIAPHRAGMATIC EVENTRATION [None]
  - BRONCHOSPASM [None]
  - PNEUMOTHORAX [None]
  - RESPIRATORY DISTRESS [None]
  - RESPIRATORY RATE INCREASED [None]
  - RHONCHI [None]
